FAERS Safety Report 19468696 (Version 1)
Quarter: 2021Q2

REPORT INFORMATION
  Report Type: Report from Study
  Country: DE (occurrence: IT)
  Receive Date: 20210628
  Receipt Date: 20210628
  Transmission Date: 20210717
  Serious: Yes (Other)
  Sender: FDA-Public Use
  Company Number: IT-ELI_LILLY_AND_COMPANY-IT202103003350

PATIENT
  Age: 62 Year
  Sex: Female
  Weight: 47 kg

DRUGS (5)
  1. IRINOTECAN HYDROCHLORIDE TRIHYDRATE [IRINOTEC [Suspect]
     Active Substance: IRINOTECAN HYDROCHLORIDE
     Indication: ADENOCARCINOMA OF COLON
     Dosage: 185 MG, UNK
     Route: 065
     Dates: start: 20210201
  2. CETUXIMAB. [Suspect]
     Active Substance: CETUXIMAB
     Indication: ADENOCARCINOMA OF COLON
     Dosage: 580 MG, UNKNOWN
     Route: 042
     Dates: start: 20210201
  3. SODIO LEVOFOLINATO MEDAC [Suspect]
     Active Substance: LEVOLEUCOVORIN DISODIUM
     Indication: ADENOCARCINOMA OF COLON
     Dosage: 290 MG, UNK
     Route: 065
     Dates: start: 20210201
  4. FLUOROURACILE MYLAN [Suspect]
     Active Substance: FLUOROURACIL
     Indication: ADENOCARCINOMA OF COLON
     Dosage: 580 MG, UNK
     Route: 040
     Dates: start: 20210201
  5. FLUOROURACILE MYLAN [Suspect]
     Active Substance: FLUOROURACIL
     Dosage: 3520 MG, UNK
     Route: 065
     Dates: start: 20210201

REACTIONS (8)
  - Folliculitis [Not Recovered/Not Resolved]
  - Diarrhoea [Not Recovered/Not Resolved]
  - Febrile neutropenia [Not Recovered/Not Resolved]
  - Dyspepsia [Not Recovered/Not Resolved]
  - Nausea [Not Recovered/Not Resolved]
  - Hypersensitivity [Not Recovered/Not Resolved]
  - Neutropenia [Not Recovered/Not Resolved]
  - Hypertransaminasaemia [Not Recovered/Not Resolved]

NARRATIVE: CASE EVENT DATE: 20210215
